FAERS Safety Report 4427768-2 (Version None)
Quarter: 2004Q3

REPORT INFORMATION
  Report Type: 
  Country: None (occurrence: None)
  Receive Date: 20040816
  Receipt Date: 20040816
  Transmission Date: 20050211
  Serious: Yes (Hospitalization)
  Sender: FDA-Public Use
  Company Number: None

PATIENT
  Age: 51 Year
  Sex: Male
  Weight: 67 kg

DRUGS (4)
  1. CISPLATIN [Suspect]
     Indication: TONGUE NEOPLASM MALIGNANT STAGE UNSPECIFIED
     Dosage: 185 MG IV
     Route: 042
     Dates: start: 20040719, end: 20040719
  2. DILAUDID [Concomitant]
  3. RESTORIL [Concomitant]
  4. PROCARDIA [Concomitant]

REACTIONS (1)
  - CATHETER SITE INFECTION [None]
